FAERS Safety Report 8194153-X (Version None)
Quarter: 2012Q1

REPORT INFORMATION
  Report Type: 
  Country: None (occurrence: None)
  Receive Date: 20120308
  Receipt Date: 20120227
  Transmission Date: 20120608
  Serious: Yes (Life-Threatening)
  Sender: FDA-Public Use
  Company Number: JP-ACTELION-A-CH2011-44356

PATIENT
  Sex: Male
  Weight: 52 kg

DRUGS (8)
  1. TRACLEER [Suspect]
     Dosage: 125 MG, BID
     Route: 048
     Dates: start: 20100222
  2. BERAPROST SODIUM [Suspect]
     Dosage: UNK
     Dates: start: 20090831
  3. TRACLEER [Suspect]
     Indication: PULMONARY ARTERIAL HYPERTENSION
     Dosage: 31.25 MG, BID
     Route: 048
     Dates: start: 20091130, end: 20091227
  4. SILDENAFIL CITRATE [Suspect]
     Dosage: UNK
     Dates: start: 20090902, end: 20100426
  5. TRACLEER [Suspect]
     Dosage: 62.5 MG, BID
     Route: 048
     Dates: start: 20091228, end: 20100124
  6. EPOPROSTENOL SODIUM [Suspect]
     Dosage: UNK
     Dates: start: 20100802
  7. WARFARIN SODIUM [Concomitant]
  8. TRACLEER [Suspect]
     Dosage: 62.5 MG, TID
     Route: 048
     Dates: start: 20100125, end: 20100221

REACTIONS (7)
  - NAUSEA [None]
  - CATHETER SITE PAIN [None]
  - RIGHT VENTRICULAR SYSTOLIC PRESSURE INCREASED [None]
  - HEADACHE [None]
  - PULMONARY ARTERIAL PRESSURE INCREASED [None]
  - BRAIN NATRIURETIC PEPTIDE INCREASED [None]
  - ULTRASOUND DOPPLER ABNORMAL [None]
